FAERS Safety Report 17850366 (Version 1)
Quarter: 2020Q2

REPORT INFORMATION
  Report Type: Spontaneous
  Country: US (occurrence: US)
  Receive Date: 20200602
  Receipt Date: 20200602
  Transmission Date: 20200714
  Serious: No
  Sender: FDA-Public Use
  Company Number: US-ASTRAZENECA-2020SE63632

PATIENT
  Age: 848 Month
  Sex: Male
  Weight: 127 kg

DRUGS (3)
  1. SYMBICORT [Suspect]
     Active Substance: BUDESONIDE\FORMOTEROL FUMARATE DIHYDRATE
     Indication: CHRONIC OBSTRUCTIVE PULMONARY DISEASE
     Dosage: 160/4.5 TWICE A DAY
     Route: 055
  2. VOLTAREN [Concomitant]
     Active Substance: DICLOFENAC SODIUM
     Indication: ANTIINFLAMMATORY THERAPY
     Dosage: 100.0MG AS REQUIRED
     Route: 048
  3. BUDESONIDE AND FORMOTEROL [Suspect]
     Active Substance: BUDESONIDE\FORMOTEROL
     Indication: CHRONIC OBSTRUCTIVE PULMONARY DISEASE
     Dosage: GENERIC, 160/4.5, TWO TIMES A DAY
     Route: 055

REACTIONS (3)
  - Drug delivery system issue [Unknown]
  - Dysgeusia [Unknown]
  - Intentional device use issue [Unknown]

NARRATIVE: CASE EVENT DATE: 202003
